FAERS Safety Report 8935056 (Version 1)
Quarter: 2012Q4

REPORT INFORMATION
  Report Type: 
  Country: US (occurrence: US)
  Receive Date: 20121129
  Receipt Date: 20121129
  Transmission Date: 20130627
  Serious: Yes (Hospitalization)
  Sender: FDA-Public Use
  Company Number: US-TEVA-372337USA

PATIENT
  Sex: Female
  Weight: 89.89 kg

DRUGS (7)
  1. PROVIGIL [Suspect]
     Indication: SLEEP APNOEA SYNDROME
     Dosage: twice daily
     Dates: end: 20121119
  2. ADDERALL [Concomitant]
     Indication: POOR QUALITY SLEEP
     Dosage: twice daily
     Route: 048
  3. ADDERALL [Concomitant]
     Indication: ATTENTION DEFICIT/HYPERACTIVITY DISORDER
  4. NAPROXEN [Concomitant]
     Indication: SWELLING
     Dosage: twice daily
     Route: 048
     Dates: start: 2010
  5. BACLOFEN [Concomitant]
     Indication: MUSCLE SPASMS
     Dosage: every 8 hrs as needed
     Route: 048
     Dates: start: 2010
  6. LASIX [Concomitant]
     Indication: FLUID RETENTION
     Dosage: every morning
     Route: 048
     Dates: start: 2008
  7. METOPROLOL [Concomitant]
     Indication: HYPERTENSION
     Dosage: twice daily
     Route: 048
     Dates: start: 2005

REACTIONS (1)
  - Cellulitis [Unknown]
